FAERS Safety Report 9034280 (Version 1)
Quarter: 2013Q1

REPORT INFORMATION
  Report Type: Spontaneous
  Country: DE (occurrence: DE)
  Receive Date: 20130128
  Receipt Date: 20130128
  Transmission Date: 20140127
  Serious: Yes (Hospitalization)
  Sender: FDA-Public Use
  Company Number: DE-AMGEN-DEUSP2011053153

PATIENT
  Age: 63 Year
  Sex: Female

DRUGS (4)
  1. NEULASTA [Suspect]
     Indication: CHEMOTHERAPY
     Dosage: 6 MG, UNK
     Dates: start: 201009, end: 201011
  2. TAXOTERE [Concomitant]
  3. ADRIAMYCIN [Concomitant]
  4. CYCLOPHOSPHAMIDE [Concomitant]

REACTIONS (1)
  - Lung disorder [Recovered/Resolved]
